FAERS Safety Report 18295262 (Version 1)
Quarter: 2020Q3

REPORT INFORMATION
  Report Type: Spontaneous
  Country: US (occurrence: US)
  Receive Date: 20200922
  Receipt Date: 20200922
  Transmission Date: 20201103
  Serious: Yes (Other)
  Sender: FDA-Public Use
  Company Number: None

PATIENT
  Age: 76 Year
  Sex: Female

DRUGS (1)
  1. SAMSCA [Suspect]
     Active Substance: TOLVAPTAN
     Indication: HYPONATRAEMIA
     Dosage: ?          OTHER FREQUENCY:EVERY 3 DAYS;?
     Route: 048
     Dates: start: 20200905

REACTIONS (4)
  - Oedema [None]
  - Skin exfoliation [None]
  - Pruritus [None]
  - Alopecia [None]

NARRATIVE: CASE EVENT DATE: 20200918
